FAERS Safety Report 5410654-9 (Version None)
Quarter: 2007Q3

REPORT INFORMATION
  Report Type: 
  Country: None (occurrence: None)
  Receive Date: 20070810
  Receipt Date: 20070511
  Transmission Date: 20080115
  Serious: Yes (Congenital Anomaly)
  Sender: FDA-Public Use
  Company Number: A0650995A

PATIENT
  Sex: Male

DRUGS (2)
  1. PAXIL [Suspect]
     Dates: start: 20031201, end: 20061001
  2. PAXIL CR [Suspect]
     Route: 048
     Dates: start: 20031201, end: 20061001

REACTIONS (2)
  - DRUG EXPOSURE DURING PREGNANCY [None]
  - VENTRICULAR SEPTAL DEFECT [None]
